FAERS Safety Report 21380725 (Version 3)
Quarter: 2022Q4

REPORT INFORMATION
  Report Type: Report from Study
  Country: US (occurrence: US)
  Receive Date: 20220927
  Receipt Date: 20221123
  Transmission Date: 20230113
  Serious: No
  Sender: FDA-Public Use
  Company Number: US-NOVARTISTESTPH-NVSC2022US218192

PATIENT
  Sex: Male

DRUGS (1)
  1. TASIGNA [Suspect]
     Active Substance: NILOTINIB
     Indication: Philadelphia positive chronic myeloid leukaemia
     Dosage: 300 MG, BID
     Route: 048
     Dates: start: 202208

REACTIONS (7)
  - Fatigue [Unknown]
  - Fluid retention [Unknown]
  - Myalgia [Unknown]
  - White blood cell count decreased [Unknown]
  - Arthralgia [Unknown]
  - Bone pain [Unknown]
  - Constipation [Unknown]
